FAERS Safety Report 21275062 (Version 1)
Quarter: 2022Q3

REPORT INFORMATION
  Report Type: Spontaneous
  Country: US (occurrence: None)
  Receive Date: 20220831
  Receipt Date: 20220831
  Transmission Date: 20221027
  Serious: Yes (Other)
  Sender: FDA-Public Use
  Company Number: None

PATIENT
  Age: 64 Year
  Sex: Male
  Weight: 75.15 kg

DRUGS (4)
  1. HYDROCORTISONE [Suspect]
     Active Substance: HYDROCORTISONE
     Indication: Adrenal insufficiency
     Dosage: FREQUENCY : TWICE A DAY;?
     Route: 048
     Dates: start: 20210514, end: 20211012
  2. HYDROCORTISONE [Suspect]
     Active Substance: HYDROCORTISONE
     Indication: Adrenal insufficiency
     Dosage: FREQUENCY : TWICE A DAY;?
     Route: 048
     Dates: start: 20211013, end: 20220113
  3. HYDROCORTISONE [Concomitant]
     Active Substance: HYDROCORTISONE
     Dates: start: 20210514, end: 20211012
  4. HYDROCORTISONE [Concomitant]
     Active Substance: HYDROCORTISONE
     Dates: start: 20211013, end: 20220113

REACTIONS (2)
  - Abdominal discomfort [None]
  - Oedema peripheral [None]

NARRATIVE: CASE EVENT DATE: 20211013
